FAERS Safety Report 23352397 (Version 1)
Quarter: 2023Q4

REPORT INFORMATION
  Report Type: Spontaneous
  Country: JP (occurrence: JP)
  Receive Date: 20231229
  Receipt Date: 20231229
  Transmission Date: 20240110
  Serious: No
  Sender: FDA-Public Use
  Company Number: JP-WW-2023-10600

PATIENT
  Age: 71 Year
  Sex: Male

DRUGS (2)
  1. LUNESTA [Suspect]
     Active Substance: ESZOPICLONE
     Route: 065
  2. DAYVIGO [Suspect]
     Active Substance: LEMBOREXANT
     Dosage: 2.5 MG
     Route: 048

REACTIONS (4)
  - Hallucination, auditory [Unknown]
  - Feeling cold [Unknown]
  - Sleep paralysis [Unknown]
  - Middle insomnia [Unknown]
